FAERS Safety Report 8098223-6 (Version None)
Quarter: 2012Q1

REPORT INFORMATION
  Report Type: 
  Country: None (occurrence: None)
  Receive Date: 20120128
  Receipt Date: 20110719
  Transmission Date: 20120608
  Serious: No
  Sender: FDA-Public Use
  Company Number: US-ABBOTT-11P-163-0840221-00

PATIENT
  Sex: Female
  Weight: 59.02 kg

DRUGS (6)
  1. METHOTREXATE [Concomitant]
     Indication: RHEUMATOID ARTHRITIS
     Dosage: 2.5MG WEEKLY
     Route: 048
  2. HUMIRA [Suspect]
     Indication: RHEUMATOID ARTHRITIS
     Route: 058
     Dates: start: 20110624
  3. PREDNISONE [Concomitant]
     Indication: RHEUMATOID ARTHRITIS
  4. IBUPROFEN [Concomitant]
  5. IBUPROFEN [Concomitant]
     Indication: ARTHRALGIA
     Route: 048
  6. FOLIC ACID [Concomitant]
     Indication: VITAMIN SUPPLEMENTATION
     Route: 048

REACTIONS (3)
  - RASH [None]
  - STOMATITIS [None]
  - PRURITUS [None]
